FAERS Safety Report 9284337 (Version 2)
Quarter: 2013Q4

REPORT INFORMATION
  Report Type: Spontaneous
  Country: US (occurrence: US)
  Receive Date: 20130510
  Receipt Date: 20131001
  Transmission Date: 20140711
  Serious: No
  Sender: FDA-Public Use
  Company Number: US-PFIZER INC-2013144367

PATIENT
  Sex: Female

DRUGS (2)
  1. ADVIL CONGESTION RELIEF [Suspect]
     Indication: SINUSITIS
     Dosage: UNK
     Dates: start: 2013, end: 201305
  2. NAPROXEN SODIUM [Suspect]
     Dosage: UNK

REACTIONS (2)
  - Weight increased [Recovered/Resolved]
  - Oedema peripheral [Recovered/Resolved]
